FAERS Safety Report 24368269 (Version 1)
Quarter: 2024Q3

REPORT INFORMATION
  Report Type: Spontaneous
  Country: GB (occurrence: GB)
  Receive Date: 20240926
  Receipt Date: 20240926
  Transmission Date: 20241017
  Serious: Yes (Life-Threatening, Disabling, Other)
  Sender: MERCK
  Company Number: None

PATIENT
  Age: 73 Year
  Sex: Female
  Weight: 77 kg

DRUGS (1)
  1. SUGAMMADEX SODIUM [Suspect]
     Active Substance: SUGAMMADEX SODIUM
     Indication: Reversal of analgesia
     Dosage: ONE OFF DOSE 200 MG IV
     Route: 042
     Dates: start: 20240922

REACTIONS (1)
  - Bronchospasm [Recovering/Resolving]

NARRATIVE: CASE EVENT DATE: 20240922
